FAERS Safety Report 25270133 (Version 4)
Quarter: 2025Q3

REPORT INFORMATION
  Report Type: Spontaneous
  Country: CN (occurrence: CN)
  Receive Date: 20250505
  Receipt Date: 20250702
  Transmission Date: 20251021
  Serious: Yes (Hospitalization, Other)
  Sender: PFIZER
  Company Number: CN-PFIZER INC-PV202500051618

PATIENT
  Age: 61 Year
  Sex: Male

DRUGS (50)
  1. XYNTHA [Suspect]
     Active Substance: MOROCTOCOG ALFA
     Indication: Haemophilia
     Route: 042
     Dates: start: 20230626
  2. XYNTHA [Suspect]
     Active Substance: MOROCTOCOG ALFA
     Route: 042
     Dates: start: 20230628
  3. XYNTHA [Suspect]
     Active Substance: MOROCTOCOG ALFA
     Route: 042
     Dates: start: 20230629
  4. XYNTHA [Suspect]
     Active Substance: MOROCTOCOG ALFA
     Route: 042
     Dates: start: 20230803
  5. XYNTHA [Suspect]
     Active Substance: MOROCTOCOG ALFA
     Route: 042
     Dates: start: 20230805
  6. XYNTHA [Suspect]
     Active Substance: MOROCTOCOG ALFA
     Route: 042
     Dates: start: 20230806
  7. XYNTHA [Suspect]
     Active Substance: MOROCTOCOG ALFA
     Route: 042
     Dates: start: 20230807
  8. XYNTHA [Suspect]
     Active Substance: MOROCTOCOG ALFA
     Route: 042
     Dates: start: 20230808
  9. XYNTHA [Suspect]
     Active Substance: MOROCTOCOG ALFA
     Dosage: 1500 IU, 2X/DAY
     Route: 042
     Dates: start: 20231011
  10. XYNTHA [Suspect]
     Active Substance: MOROCTOCOG ALFA
     Dosage: 1500 IU, 2X/DAY
     Route: 042
     Dates: start: 20231019
  11. XYNTHA [Suspect]
     Active Substance: MOROCTOCOG ALFA
     Dosage: 1500 IU, 2X/DAY
     Route: 042
     Dates: start: 20231026
  12. XYNTHA [Suspect]
     Active Substance: MOROCTOCOG ALFA
     Dosage: 1500 IU, 2X/DAY
     Route: 042
     Dates: start: 20231102
  13. XYNTHA [Suspect]
     Active Substance: MOROCTOCOG ALFA
     Dosage: 1500 IU, 2X/DAY
     Route: 042
     Dates: start: 20231109
  14. XYNTHA [Suspect]
     Active Substance: MOROCTOCOG ALFA
     Dosage: 1500 IU, 2X/DAY
     Route: 042
     Dates: start: 20231116
  15. XYNTHA [Suspect]
     Active Substance: MOROCTOCOG ALFA
     Route: 042
     Dates: start: 20231120
  16. XYNTHA [Suspect]
     Active Substance: MOROCTOCOG ALFA
     Route: 042
     Dates: start: 20231121
  17. XYNTHA [Suspect]
     Active Substance: MOROCTOCOG ALFA
     Dosage: 1000 IU, 2X/DAY
     Route: 042
     Dates: start: 20231122
  18. XYNTHA [Suspect]
     Active Substance: MOROCTOCOG ALFA
     Route: 042
     Dates: start: 20231122
  19. XYNTHA [Suspect]
     Active Substance: MOROCTOCOG ALFA
     Route: 042
     Dates: start: 20231123
  20. XYNTHA [Suspect]
     Active Substance: MOROCTOCOG ALFA
     Route: 042
     Dates: start: 20231123
  21. XYNTHA [Suspect]
     Active Substance: MOROCTOCOG ALFA
     Route: 042
     Dates: start: 20231125
  22. XYNTHA [Suspect]
     Active Substance: MOROCTOCOG ALFA
     Route: 042
     Dates: start: 20231126
  23. XYNTHA [Suspect]
     Active Substance: MOROCTOCOG ALFA
     Route: 042
     Dates: start: 20231127
  24. XYNTHA [Suspect]
     Active Substance: MOROCTOCOG ALFA
     Dosage: 1000 IU, 2X/DAY
     Route: 042
     Dates: start: 20231205
  25. XYNTHA [Suspect]
     Active Substance: MOROCTOCOG ALFA
     Dosage: 1000 IU, 2X/DAY
     Route: 042
     Dates: start: 20231219
  26. XYNTHA [Suspect]
     Active Substance: MOROCTOCOG ALFA
     Dosage: 1000 IU, 2X/DAY
     Route: 042
     Dates: start: 20240102
  27. XYNTHA [Suspect]
     Active Substance: MOROCTOCOG ALFA
     Dosage: 1000 IU, 2X/DAY
     Route: 042
     Dates: start: 20240206
  28. XYNTHA [Suspect]
     Active Substance: MOROCTOCOG ALFA
     Dosage: 1000 IU, 2X/DAY
     Route: 042
     Dates: start: 20240227
  29. XYNTHA [Suspect]
     Active Substance: MOROCTOCOG ALFA
     Dosage: 1000 IU, 2X/DAY
     Route: 042
     Dates: start: 20240312
  30. XYNTHA [Suspect]
     Active Substance: MOROCTOCOG ALFA
     Dosage: 1000 IU, 2X/DAY
     Route: 042
     Dates: start: 20240326
  31. XYNTHA [Suspect]
     Active Substance: MOROCTOCOG ALFA
     Dosage: 1000 IU, 2X/DAY
     Route: 042
     Dates: start: 20240409
  32. XYNTHA [Suspect]
     Active Substance: MOROCTOCOG ALFA
     Dosage: 1000 IU, 2X/DAY
     Route: 042
     Dates: start: 20240423
  33. XYNTHA [Suspect]
     Active Substance: MOROCTOCOG ALFA
     Dosage: 1000 IU, 2X/DAY
     Route: 042
     Dates: start: 20240507
  34. XYNTHA [Suspect]
     Active Substance: MOROCTOCOG ALFA
     Dosage: 1000 IU, 2X/DAY
     Route: 042
     Dates: start: 20240521
  35. XYNTHA [Suspect]
     Active Substance: MOROCTOCOG ALFA
     Route: 042
     Dates: start: 20240522
  36. XYNTHA [Suspect]
     Active Substance: MOROCTOCOG ALFA
     Dosage: QOD
     Route: 042
     Dates: start: 20240716
  37. XYNTHA [Suspect]
     Active Substance: MOROCTOCOG ALFA
     Dosage: QOD
     Route: 042
     Dates: start: 20240919
  38. XYNTHA [Suspect]
     Active Substance: MOROCTOCOG ALFA
     Dosage: QOD
     Route: 042
     Dates: start: 20241017
  39. XYNTHA [Suspect]
     Active Substance: MOROCTOCOG ALFA
     Dosage: QOD
     Route: 042
     Dates: start: 20241119
  40. XYNTHA [Suspect]
     Active Substance: MOROCTOCOG ALFA
     Dosage: QOD
     Route: 042
     Dates: start: 20241219
  41. XYNTHA [Suspect]
     Active Substance: MOROCTOCOG ALFA
     Dosage: QOD
     Route: 042
     Dates: start: 20250116
  42. XYNTHA [Suspect]
     Active Substance: MOROCTOCOG ALFA
     Dosage: QOD
     Route: 042
     Dates: start: 20250218
  43. XYNTHA [Suspect]
     Active Substance: MOROCTOCOG ALFA
     Dosage: QOD
     Route: 042
     Dates: start: 20250318
  44. XYNTHA [Suspect]
     Active Substance: MOROCTOCOG ALFA
     Route: 042
     Dates: start: 20250325
  45. XYNTHA [Suspect]
     Active Substance: MOROCTOCOG ALFA
     Route: 042
     Dates: start: 20250327
  46. XYNTHA [Suspect]
     Active Substance: MOROCTOCOG ALFA
     Route: 042
     Dates: start: 20250327
  47. XYNTHA [Suspect]
     Active Substance: MOROCTOCOG ALFA
     Route: 042
     Dates: start: 20250327
  48. XYNTHA [Suspect]
     Active Substance: MOROCTOCOG ALFA
     Route: 042
     Dates: start: 20250328
  49. XYNTHA [Suspect]
     Active Substance: MOROCTOCOG ALFA
     Route: 042
     Dates: start: 20250328
  50. XYNTHA [Suspect]
     Active Substance: MOROCTOCOG ALFA
     Route: 042
     Dates: start: 20250329

REACTIONS (3)
  - Headache [Recovered/Resolved]
  - Dizziness [Recovered/Resolved]
  - Cerebral haemorrhage [Recovered/Resolved]

NARRATIVE: CASE EVENT DATE: 20250301
